FAERS Safety Report 25921813 (Version 1)
Quarter: 2025Q4

REPORT INFORMATION
  Report Type: Spontaneous
  Country: EU (occurrence: EU)
  Receive Date: 20251014
  Receipt Date: 20251014
  Transmission Date: 20260118
  Serious: Yes (Hospitalization, Other)
  Sender: MERCK SHARP & DOHME LLC
  Company Number: EU-009507513-2336459

PATIENT
  Age: 80 Year
  Sex: Female

DRUGS (2)
  1. KEYTRUDA [Suspect]
     Active Substance: PEMBROLIZUMAB
     Indication: Malignant melanoma
     Dosage: 1ST CYCLE
     Dates: start: 20250128, end: 20250128
  2. KEYTRUDA [Suspect]
     Active Substance: PEMBROLIZUMAB
     Indication: Malignant melanoma
     Dosage: 2ND CYCLE
     Dates: start: 20250303, end: 20250303

REACTIONS (7)
  - Immune-mediated lung disease [Recovering/Resolving]
  - Malignant neoplasm progression [Unknown]
  - Inappropriate schedule of product administration [Unknown]
  - Pulmonary toxicity [Unknown]
  - Cough [Recovered/Resolved]
  - X-ray abnormal [Unknown]
  - Ascites [Unknown]

NARRATIVE: CASE EVENT DATE: 20250101
